FAERS Safety Report 17144997 (Version 1)
Quarter: 2019Q4

REPORT INFORMATION
  Report Type: Spontaneous
  Country: US (occurrence: US)
  Receive Date: 20191211
  Receipt Date: 20191211
  Transmission Date: 20200122
  Serious: Yes (Disabling)
  Sender: FDA-Public Use
  Company Number: None

PATIENT
  Age: 33 Year
  Sex: Female
  Weight: 59.4 kg

DRUGS (15)
  1. AIMOVIG [Suspect]
     Active Substance: ERENUMAB-AOOE
     Indication: MIGRAINE
     Dates: start: 20190710, end: 20190910
  2. MAXALT [Concomitant]
     Active Substance: RIZATRIPTAN BENZOATE
  3. ALOE VERA CAPSULES [Concomitant]
  4. OMEGA 3 [Concomitant]
     Active Substance: OMEGA-3 FATTY ACIDS
  5. MAGNESIUM [Concomitant]
     Active Substance: MAGNESIUM
  6. ATIVAN [Concomitant]
     Active Substance: LORAZEPAM
  7. EMGALITY [Suspect]
     Active Substance: GALCANEZUMAB-GNLM
  8. VITAMIN D [Concomitant]
     Active Substance: VITAMIN D NOS
  9. GABAPENTIN. [Concomitant]
     Active Substance: GABAPENTIN
  10. BENADRYL [Concomitant]
     Active Substance: DIPHENHYDRAMINE HYDROCHLORIDE
  11. ALLEGRA [Concomitant]
     Active Substance: FEXOFENADINE HYDROCHLORIDE
  12. SEROQUEL [Concomitant]
     Active Substance: QUETIAPINE FUMARATE
  13. MELATONIN [Concomitant]
     Active Substance: MELATONIN
  14. PROBIOTICS [Concomitant]
     Active Substance: PROBIOTICS NOS
  15. RANITIDINE. [Concomitant]
     Active Substance: RANITIDINE

REACTIONS (32)
  - Nerve compression [None]
  - Muscle spasms [None]
  - Musculoskeletal stiffness [None]
  - Hypoaesthesia oral [None]
  - Fatigue [None]
  - Tinnitus [None]
  - Hypertension [None]
  - Impaired quality of life [None]
  - Tarsal tunnel syndrome [None]
  - Hypoaesthesia [None]
  - Pain [None]
  - Abdominal distension [None]
  - Musculoskeletal pain [None]
  - Gastrooesophageal reflux disease [None]
  - Cubital tunnel syndrome [None]
  - Condition aggravated [None]
  - Injection site pain [None]
  - Thoracic radiculopathy [None]
  - Meralgia paraesthetica [None]
  - Cognitive disorder [None]
  - Loss of personal independence in daily activities [None]
  - Limb discomfort [None]
  - Tremor [None]
  - Dyspnoea [None]
  - Neuropathy peripheral [None]
  - Carpal tunnel syndrome [None]
  - Constipation [None]
  - Memory impairment [None]
  - Aphasia [None]
  - Palpitations [None]
  - Hypotension [None]
  - Panic reaction [None]

NARRATIVE: CASE EVENT DATE: 20190710
